FAERS Safety Report 19599983 (Version 2)
Quarter: 2021Q3

REPORT INFORMATION
  Report Type: Spontaneous
  Country: FR (occurrence: FR)
  Receive Date: 20210722
  Receipt Date: 20210901
  Transmission Date: 20211014
  Serious: Yes (Other)
  Sender: FDA-Public Use
  Company Number: FR-PFIZER INC-2021867831

PATIENT
  Age: 47 Year
  Sex: Female

DRUGS (1)
  1. PAMIDRONATE DE SODIUM HOSPIRA [Suspect]
     Active Substance: PAMIDRONATE DISODIUM
     Indication: OSTEOARTHRITIS
     Dosage: 90 MG
     Route: 041
     Dates: start: 20210623

REACTIONS (1)
  - Phlebitis deep [Recovering/Resolving]

NARRATIVE: CASE EVENT DATE: 20210624
